FAERS Safety Report 4479321-2 (Version None)
Quarter: 2004Q4

REPORT INFORMATION
  Report Type: 
  Country: None (occurrence: None)
  Receive Date: 20041015
  Receipt Date: 20040927
  Transmission Date: 20050328
  Serious: Yes (Death)
  Sender: FDA-Public Use
  Company Number: 2004235994US

PATIENT
  Age: 68 Year

DRUGS (2)
  1. HEPARIN SODIUM INJECTION [Suspect]
     Dosage: PARENTERAL
     Route: 051
  2. ENOXAPARIN SODIUM [Suspect]
     Dosage: PARENTERAL
     Route: 051

REACTIONS (1)
  - MEDICATION ERROR [None]
